FAERS Safety Report 9509048 (Version 1)
Quarter: 2013Q3

REPORT INFORMATION
  Report Type: Spontaneous
  Country: US (occurrence: US)
  Receive Date: 20130909
  Receipt Date: 20130909
  Transmission Date: 20140515
  Serious: Yes (Other)
  Sender: FDA-Public Use
  Company Number: US-BAYER-2013-105064

PATIENT
  Age: 41 Year
  Sex: Female
  Weight: 90.25 kg

DRUGS (2)
  1. CIPRO [Suspect]
     Dosage: UNK
  2. ZITHROMAX [Concomitant]

REACTIONS (7)
  - Hypersensitivity [None]
  - Swelling [None]
  - Skin exfoliation [None]
  - Urticaria [None]
  - Rash [None]
  - Hepatic enzyme increased [Recovering/Resolving]
  - Alopecia [None]
